FAERS Safety Report 4468084-2 (Version None)
Quarter: 2004Q4

REPORT INFORMATION
  Report Type: 
  Country: None (occurrence: None)
  Receive Date: 20041004
  Receipt Date: 20040921
  Transmission Date: 20050328
  Serious: Yes (Other)
  Sender: FDA-Public Use
  Company Number: 2004069367

PATIENT
  Age: 81 Year
  Sex: Male
  Weight: 65 kg

DRUGS (4)
  1. VIBRAMYCIN [Suspect]
     Indication: BORRELIA INFECTION
     Dosage: 200 MG (200 MG, 1 IN 1 D), ORAL
     Route: 048
     Dates: start: 20040630, end: 20040713
  2. VALSARTAN [Concomitant]
  3. ALL OTHER THERAPEUTIC PRODUCTS [Concomitant]
  4. NICORANDIL [Concomitant]

REACTIONS (5)
  - ASTHENIA [None]
  - ERYTHEMA MULTIFORME [None]
  - LEUKODERMA [None]
  - SCAR [None]
  - SUPERINFECTION [None]
